FAERS Safety Report 8155445-3 (Version None)
Quarter: 2012Q1

REPORT INFORMATION
  Report Type: 
  Country: None (occurrence: None)
  Receive Date: 20120206
  Receipt Date: 20120125
  Transmission Date: 20120608
  Serious: No
  Sender: FDA-Public Use
  Company Number: 0225165

PATIENT
  Age: 54 Year
  Sex: Female

DRUGS (1)
  1. TACHOSIL [Suspect]

REACTIONS (3)
  - INTESTINAL OBSTRUCTION [None]
  - INTESTINAL DILATATION [None]
  - WRONG TECHNIQUE IN DRUG USAGE PROCESS [None]
